FAERS Safety Report 5517386-7 (Version None)
Quarter: 2007Q4

REPORT INFORMATION
  Report Type: 
  Country: None (occurrence: None)
  Receive Date: 20071114
  Receipt Date: 20071108
  Transmission Date: 20080405
  Serious: Yes (Other)
  Sender: FDA-Public Use
  Company Number: FR-AVENTIS-200715237EU

PATIENT
  Sex: Female

DRUGS (9)
  1. FLUDEX                             /00340101/ [Suspect]
     Dosage: DOSE: UNK
     Route: 048
  2. ACTOS [Suspect]
     Dosage: DOSE: UNK
  3. AMARYL [Suspect]
     Route: 048
  4. GLUCOPHAGE [Suspect]
  5. ZOCOR [Suspect]
     Indication: DYSLIPIDAEMIA
     Dosage: DOSE: UNK
     Route: 048
  6. ACUITEL                            /00810601/ [Suspect]
     Dosage: DOSE: UNK
     Route: 048
  7. LIORESAL [Suspect]
     Dosage: DOSE: UNK
     Route: 048
  8. MYOLASTAN [Suspect]
     Dosage: DOSE: UNK
     Route: 048
  9. AMPECYCLAL [Suspect]
     Dosage: DOSE: UNK
     Route: 048

REACTIONS (1)
  - PATHOLOGICAL FRACTURE [None]
